FAERS Safety Report 12683075 (Version 1)
Quarter: 2016Q3

REPORT INFORMATION
  Report Type: Spontaneous
  Country: None (occurrence: None)
  Receive Date: 20160824
  Receipt Date: 20160824
  Transmission Date: 20161109
  Serious: Yes (Other)
  Sender: FDA-Public Use
  Company Number: None

PATIENT
  Age: 49 Year
  Sex: Female
  Weight: 58.97 kg

DRUGS (6)
  1. YAZ [Concomitant]
     Active Substance: DROSPIRENONE\ETHINYL ESTRADIOL
  2. TREXIMET [Concomitant]
     Active Substance: NAPROXEN SODIUM\SUMATRIPTAN SUCCINATE
  3. BACLOFEN. [Concomitant]
     Active Substance: BACLOFEN
  4. HUMIRA [Suspect]
     Active Substance: ADALIMUMAB
     Indication: PSORIATIC ARTHROPATHY
     Dosage: 40 MG EVERY OTHER WEEK GIVEN INTO/UNDER THE SKIN
     Dates: start: 20160803, end: 20160803
  5. LYRICA [Concomitant]
     Active Substance: PREGABALIN
  6. TRAMADOL. [Concomitant]
     Active Substance: TRAMADOL

REACTIONS (4)
  - Urticaria [None]
  - Rash [None]
  - Pruritus [None]
  - Dysgeusia [None]

NARRATIVE: CASE EVENT DATE: 20160805
